FAERS Safety Report 16096415 (Version 2)
Quarter: 2019Q1

REPORT INFORMATION
  Report Type: Spontaneous
  Country: PT (occurrence: PT)
  Receive Date: 20190320
  Receipt Date: 20190325
  Transmission Date: 20190418
  Serious: Yes (Other)
  Sender: FDA-Public Use
  Company Number: PT-TEVA-2019-PT-1026495

PATIENT
  Age: 67 Year
  Sex: Female
  Weight: 62 kg

DRUGS (3)
  1. LISONORM [Suspect]
     Active Substance: AMLODIPINE BESYLATE\LISINOPRIL
     Indication: HYPERTENSION
     Dosage: 20/5 MG 1X FASTING
     Route: 048
     Dates: start: 20190210, end: 20190227
  2. SINVASTATINA AUROVITAS [Suspect]
     Active Substance: SIMVASTATIN
     Indication: BLOOD CHOLESTEROL INCREASED
     Dosage: 20 MILLIGRAM DAILY; 20 MG 1X DAY NIGHT
     Route: 048
     Dates: start: 20150804
  3. ASPIRINA GR 100MG COMPRIMIDOS GASTRORRESISTENTES [Concomitant]

REACTIONS (1)
  - Throat irritation [Recovered/Resolved]

NARRATIVE: CASE EVENT DATE: 20190224
